FAERS Safety Report 6160033-4 (Version None)
Quarter: 2009Q2

REPORT INFORMATION
  Report Type: 
  Country: None (occurrence: None)
  Receive Date: 20090420
  Receipt Date: 20090414
  Transmission Date: 20091009
  Serious: Yes (Death, Hospitalization)
  Sender: FDA-Public Use
  Company Number: US-BAYER-200911414NA

PATIENT
  Age: 64 Year
  Sex: Male

DRUGS (8)
  1. AVELOX [Suspect]
     Indication: DRUG USE FOR UNKNOWN INDICATION
     Dosage: TOTAL DAILY DOSE: 400 MG  UNIT DOSE: 400 MG
     Dates: start: 20090113
  2. ZOCOR [Concomitant]
     Dosage: TOTAL DAILY DOSE: 40 MG
  3. ASPIRIN [Concomitant]
     Dosage: TOTAL DAILY DOSE: 81 MG
     Route: 048
  4. SINGULAIR [Concomitant]
     Dosage: TOTAL DAILY DOSE: 10 MG
     Route: 048
  5. METFORMIN HCL [Concomitant]
     Dosage: AS USED: 500 MG
     Route: 048
  6. AVAPRO [Concomitant]
     Dosage: TOTAL DAILY DOSE: 150 MG
     Route: 048
  7. COREG [Concomitant]
     Dosage: TOTAL DAILY DOSE: 25 MG
     Route: 048
  8. HYTRIN [Concomitant]
     Dosage: AS USED: 1 MG
     Route: 048

REACTIONS (2)
  - ANAPHYLACTIC REACTION [None]
  - DYSPNOEA [None]
